FAERS Safety Report 5987872-4 (Version None)
Quarter: 2008Q4

REPORT INFORMATION
  Report Type: 
  Country: None (occurrence: None)
  Receive Date: 20081209
  Receipt Date: 20080402
  Transmission Date: 20090506
  Serious: No
  Sender: FDA-Public Use
  Company Number: US-TYCO HEALTHCARE/MALLINCKRODT-T200800632

PATIENT

DRUGS (3)
  1. THALLOUS CHLORIDE TL 201 [Suspect]
     Indication: SCAN MYOCARDIAL PERFUSION
     Dosage: 4.4 MCI, SINGLE
     Dates: start: 20080331, end: 20080331
  2. ULTRA-TECHNEKOW [Suspect]
     Dosage: UNK, SINGLE
     Dates: start: 20080331, end: 20080331
  3. MYOVIEW [Suspect]
     Dosage: 25 MCI, SINGLE
     Dates: start: 20080331, end: 20080331

REACTIONS (2)
  - FEELING ABNORMAL [None]
  - URTICARIA [None]
